FAERS Safety Report 20186942 (Version 1)
Quarter: 2021Q4

REPORT INFORMATION
  Report Type: Spontaneous
  Country: AR (occurrence: AR)
  Receive Date: 20211215
  Receipt Date: 20211215
  Transmission Date: 20220303
  Serious: Yes (Hospitalization, Other)
  Sender: FDA-Public Use
  Company Number: AR-NOVARTISPH-NVSC2021AR272264

PATIENT
  Sex: Female

DRUGS (3)
  1. TRILEPTAL [Suspect]
     Active Substance: OXCARBAZEPINE
     Indication: Seizure
     Dosage: 300 MG, UNKNOWN (STARTED 17 YEARS AGO)
     Route: 065
  2. TRILEPTAL [Suspect]
     Active Substance: OXCARBAZEPINE
     Dosage: 300 MG, UNKNOWN (STARTED 8 YEARS AGO APPROXIMATELY)
     Route: 065
  3. TRILEPTAL [Suspect]
     Active Substance: OXCARBAZEPINE
     Dosage: 300 MG, UNKNOWN
     Route: 065

REACTIONS (25)
  - Seizure [Unknown]
  - Herpes zoster [Recovered/Resolved]
  - Rash [Recovered/Resolved]
  - Red blood cell count increased [Unknown]
  - Loss of consciousness [Unknown]
  - Syncope [Unknown]
  - Benign breast neoplasm [Unknown]
  - Nervousness [Unknown]
  - Stress [Unknown]
  - Headache [Unknown]
  - Endometriosis [Unknown]
  - Breast pain [Not Recovered/Not Resolved]
  - Breast mass [Unknown]
  - Amnesia [Unknown]
  - COVID-19 [Unknown]
  - Anosmia [Unknown]
  - Myalgia [Unknown]
  - Pulmonary pain [Unknown]
  - Vertigo [Recovered/Resolved]
  - Calcium deficiency [Unknown]
  - Teeth brittle [Unknown]
  - Tooth loss [Unknown]
  - Infectious mononucleosis [Unknown]
  - Product availability issue [Recovered/Resolved]
  - Drug effect less than expected [Unknown]

NARRATIVE: CASE EVENT DATE: 20070101
